FAERS Safety Report 9153748 (Version 1)
Quarter: 2013Q1

REPORT INFORMATION
  Report Type: Spontaneous
  Country: US (occurrence: None)
  Receive Date: 20130306
  Receipt Date: 20130306
  Transmission Date: 20140127
  Serious: Yes (Life-Threatening, Hospitalization, Other)
  Sender: FDA-Public Use
  Company Number: None

PATIENT
  Sex: Male
  Weight: 113.4 kg

DRUGS (1)
  1. XARELTO [Suspect]
     Dosage: 20 MG  1 TIME A DAY
     Dates: start: 20121213

REACTIONS (4)
  - Apparent life threatening event [None]
  - Rectal haemorrhage [None]
  - Large intestinal haemorrhage [None]
  - Renal haemorrhage [None]
